FAERS Safety Report 15110351 (Version 2)
Quarter: 2018Q3

REPORT INFORMATION
  Report Type: Spontaneous
  Country: FR (occurrence: FR)
  Receive Date: 20180705
  Receipt Date: 20180711
  Transmission Date: 20181010
  Serious: Yes (Death, Hospitalization, Other)
  Sender: FDA-Public Use
  Company Number: FR-GLAXOSMITHKLINE-FR2018GSK116877

PATIENT
  Age: 32 Year
  Sex: Male

DRUGS (1)
  1. NICOTINE. [Suspect]
     Active Substance: NICOTINE
     Indication: PRODUCT USED FOR UNKNOWN INDICATION
     Dosage: UNK
     Route: 065

REACTIONS (13)
  - Loss of consciousness [Unknown]
  - Shock [Unknown]
  - Tobacco poisoning [Fatal]
  - Hypokalaemia [Unknown]
  - Diarrhoea [Unknown]
  - Miosis [Unknown]
  - Vomiting [Unknown]
  - Syncope [Unknown]
  - Pneumonia [Unknown]
  - Hypothermia [Unknown]
  - Cardiac arrest [Fatal]
  - Coma [Unknown]
  - Acute kidney injury [Unknown]
